FAERS Safety Report 9778814 (Version 1)
Quarter: 2013Q4

REPORT INFORMATION
  Report Type: Spontaneous
  Country: DE (occurrence: DE)
  Receive Date: 20131223
  Receipt Date: 20131223
  Transmission Date: 20140711
  Serious: Yes (Life-Threatening, Hospitalization, Other)
  Sender: FDA-Public Use
  Company Number: DE-ALLERGAN-1319964US

PATIENT
  Sex: Male

DRUGS (3)
  1. VISTABEL [Suspect]
     Indication: SKIN WRINKLING
     Dosage: 50 UNITS, SINGLE
     Dates: start: 20131121, end: 20131121
  2. VISTABEL [Suspect]
     Indication: SKIN WRINKLING
  3. VISTABEL [Suspect]
     Indication: SKIN WRINKLING

REACTIONS (3)
  - Vitello-intestinal duct remnant [Unknown]
  - Ileus [Unknown]
  - Peritonitis [Unknown]
